FAERS Safety Report 12806444 (Version 2)
Quarter: 2016Q4

REPORT INFORMATION
  Report Type: Report from Study
  Country: US (occurrence: US)
  Receive Date: 20161004
  Receipt Date: 20161005
  Transmission Date: 20170207
  Serious: Yes (Other)
  Sender: FDA-Public Use
  Company Number: US-BAYER-2016-187527

PATIENT
  Age: 71 Year
  Sex: Male

DRUGS (8)
  1. SPIRONOLACTON [Concomitant]
     Active Substance: SPIRONOLACTONE
  2. NEXAVAR [Suspect]
     Active Substance: SORAFENIB
     Indication: HEPATOCELLULAR CARCINOMA
     Dosage: 200 MG, BID
     Route: 048
     Dates: start: 20160924
  3. BUMETANIDE. [Concomitant]
     Active Substance: BUMETANIDE
  4. OXYCODONE [Concomitant]
     Active Substance: OXYCODONE
     Dosage: UNK
  5. OMEPRAZOLE. [Concomitant]
     Active Substance: OMEPRAZOLE
  6. GENERLAC [Concomitant]
     Active Substance: LACTULOSE
  7. OXYCODONE [Concomitant]
     Active Substance: OXYCODONE
     Dosage: UNK
  8. KLOR-CON M20 [Concomitant]
     Active Substance: POTASSIUM CHLORIDE

REACTIONS (9)
  - Diarrhoea [Not Recovered/Not Resolved]
  - Blood glucose increased [Recovering/Resolving]
  - Muscular weakness [Not Recovered/Not Resolved]
  - Insomnia [Not Recovered/Not Resolved]
  - Irritability [Recovering/Resolving]
  - Feeling abnormal [Recovering/Resolving]
  - Gait disturbance [Not Recovered/Not Resolved]
  - Fatigue [Not Recovered/Not Resolved]
  - Asthenia [Not Recovered/Not Resolved]

NARRATIVE: CASE EVENT DATE: 20160924
